FAERS Safety Report 4352936-8 (Version None)
Quarter: 2004Q2

REPORT INFORMATION
  Report Type: 
  Country: None (occurrence: None)
  Receive Date: 20040430
  Receipt Date: 20040315
  Transmission Date: 20050107
  Serious: No
  Sender: FDA-Public Use
  Company Number: 205301

PATIENT
  Age: 32 Year
  Sex: Female
  Weight: 73.5 kg

DRUGS (5)
  1. XOLAIR [Suspect]
     Indication: ASTHMA
     Dosage: 300 MG, Q2W
     Dates: start: 20040122
  2. ADVAIR (SALMETEROL XINAFOATE, FLUTICASONE PROPIONATE) [Concomitant]
  3. ALBUTEROL (ALBUTEROL, ALBUTEROL SULFATE) [Concomitant]
  4. COMBIVENT (ALBUTEROL SULFATE, ALBUTEROL, IPRATROPIUM BROMIDE) [Concomitant]
  5. SINGULAIR [Concomitant]

REACTIONS (1)
  - PHOTOSENSITIVITY REACTION [None]
